FAERS Safety Report 4968386-7 (Version None)
Quarter: 2006Q2

REPORT INFORMATION
  Report Type: 
  Country: None (occurrence: None)
  Receive Date: 20060410
  Receipt Date: 20060316
  Transmission Date: 20061013
  Serious: Yes (Other)
  Sender: FDA-Public Use
  Company Number: AU-BOEHRINGER INGELHEIM PHARMACEUTICALS, INC.-2006-BP-03465AU

PATIENT
  Sex: Male
  Weight: 72 kg

DRUGS (2)
  1. MICARDIS [Suspect]
     Indication: HYPERTENSION
     Route: 048
     Dates: start: 20050901, end: 20060315
  2. ZOCOR [Suspect]
     Indication: HYPERCHOLESTEROLAEMIA

REACTIONS (3)
  - MUSCLE TWITCHING [None]
  - PARAESTHESIA [None]
  - TREMOR [None]
